FAERS Safety Report 20064612 (Version 1)
Quarter: 2021Q4

REPORT INFORMATION
  Report Type: Spontaneous
  Country: US (occurrence: US)
  Receive Date: 20211112
  Receipt Date: 20211112
  Transmission Date: 20220303
  Serious: No
  Sender: FDA-Public Use
  Company Number: US-JNJFOC-20211111358

PATIENT
  Age: 44 Year
  Sex: Female
  Weight: 63.560 kg

DRUGS (1)
  1. RISPERDAL [Suspect]
     Active Substance: RISPERIDONE
     Indication: Schizophrenia
     Dosage: 3 OR 6 MG DAILY
     Route: 065
     Dates: start: 2011

REACTIONS (2)
  - Appetite disorder [Unknown]
  - Fatigue [Unknown]
